FAERS Safety Report 7264117-9 (Version None)
Quarter: 2011Q1

REPORT INFORMATION
  Report Type: 
  Country: None (occurrence: None)
  Receive Date: 20110130
  Receipt Date: 20110119
  Transmission Date: 20110831
  Serious: Yes (Disabling)
  Sender: FDA-Public Use
  Company Number: DE-BRISTOL-MYERS SQUIBB COMPANY-15514037

PATIENT
  Age: 55 Year
  Sex: Male

DRUGS (4)
  1. LYSODREN [Suspect]
     Indication: ADRENOCORTICAL CARCINOMA
     Dates: start: 20020101
  2. ASTONIN-H [Concomitant]
     Indication: ADRENAL INSUFFICIENCY
     Dosage: ASTONIN-H 0.1MG
     Dates: start: 20020101
  3. TESTOSTERONE [Concomitant]
     Indication: ADRENAL INSUFFICIENCY
     Dosage: TESTOGEL 25MG
     Dates: start: 20050101
  4. HYDROCORTISONE [Concomitant]
     Indication: ADRENAL INSUFFICIENCY
     Dosage: HYDROCORTISONE 10MG, 1.5-1-1
     Dates: start: 20020101

REACTIONS (10)
  - MUSCLE SPASMS [None]
  - HAEMATOMA [None]
  - MUSCULAR WEAKNESS [None]
  - BLOOD UREA DECREASED [None]
  - PRURITUS [None]
  - GYNAECOMASTIA [None]
  - GAMMA-GLUTAMYLTRANSFERASE INCREASED [None]
  - TREMOR [None]
  - POLYNEUROPATHY [None]
  - DISTURBANCE IN ATTENTION [None]
